FAERS Safety Report 7708828-7 (Version None)
Quarter: 2011Q3

REPORT INFORMATION
  Report Type: 
  Country: None (occurrence: None)
  Receive Date: 20110825
  Receipt Date: 20110812
  Transmission Date: 20111222
  Serious: Yes (Other)
  Sender: FDA-Public Use
  Company Number: DE-UCBSA-039167

PATIENT
  Sex: Female

DRUGS (9)
  1. TETATUNS VACC [Concomitant]
     Dosage: UNKNOWN DOSE
     Dates: start: 20110506
  2. PREDNISOLONE [Concomitant]
     Dates: start: 20110607
  3. CERTOLIZUMAB PEGOL [Suspect]
     Indication: RHEUMATOID ARTHRITIS
     Route: 058
     Dates: start: 20110413, end: 20110607
  4. PREDNISOLONE [Concomitant]
     Indication: RHEUMATOID ARTHRITIS
     Dates: end: 20110506
  5. PREDNISOLONE [Concomitant]
     Dates: start: 20110509, end: 20110606
  6. VOLTAREN [Concomitant]
     Indication: RHEUMATOID ARTHRITIS
     Dosage: PRN (AS NEEDED)
  7. FRAGMIN PFORTE [Concomitant]
     Indication: CONTUSION
     Dosage: 5000 IE
     Dates: start: 20110506, end: 20110509
  8. OLMESARTAN MEDOXOMIL [Concomitant]
     Indication: HYPERTENSION
  9. CALCIUM CARBONATE [Concomitant]
     Indication: VITAMIN D DEFICIENCY
     Dosage: 400 IE

REACTIONS (1)
  - ERYTHEMA NODOSUM [None]
